FAERS Safety Report 23710695 (Version 1)
Quarter: 2024Q2

REPORT INFORMATION
  Report Type: Report from Study
  Country: US (occurrence: US)
  Receive Date: 20240405
  Receipt Date: 20240405
  Transmission Date: 20240715
  Serious: Yes (Hospitalization, Other)
  Sender: FDA-Public Use
  Company Number: US-ABBVIE-5704436

PATIENT
  Sex: Female

DRUGS (1)
  1. DELZICOL [Suspect]
     Active Substance: MESALAMINE
     Indication: Colitis ulcerative
     Route: 048

REACTIONS (9)
  - Full blood count decreased [Unknown]
  - Renal impairment [Unknown]
  - Vomiting [Unknown]
  - Pain [Unknown]
  - Malaise [Unknown]
  - Hypophagia [Unknown]
  - Hospitalisation [Unknown]
  - Blood iron decreased [Unknown]
  - Illness [Unknown]
